FAERS Safety Report 25826676 (Version 1)
Quarter: 2025Q3

REPORT INFORMATION
  Report Type: Report from Study
  Country: US (occurrence: US)
  Receive Date: 20250920
  Receipt Date: 20250920
  Transmission Date: 20251021
  Serious: Yes (Other)
  Sender: ABBVIE
  Company Number: US-ABBVIE-6464195

PATIENT
  Age: 40 Year
  Sex: Male

DRUGS (1)
  1. RINVOQ [Suspect]
     Active Substance: UPADACITINIB
     Indication: Crohn^s disease
     Route: 048
     Dates: start: 20250718, end: 20250829

REACTIONS (6)
  - Acute kidney injury [Unknown]
  - Sepsis [Recovered/Resolved]
  - Hypokalaemia [Unknown]
  - Troponin increased [Unknown]
  - Oedema [Unknown]
  - Pertussis [Unknown]

NARRATIVE: CASE EVENT DATE: 20250101
